FAERS Safety Report 15276662 (Version 1)
Quarter: 2018Q3

REPORT INFORMATION
  Report Type: Spontaneous
  Country: US (occurrence: US)
  Receive Date: 20180729
  Receipt Date: 20180729
  Transmission Date: 20181010
  Serious: No
  Sender: FDA-Public Use
  Company Number: None

PATIENT
  Age: 49 Year
  Sex: Female
  Weight: 85.5 kg

DRUGS (3)
  1. HXTZ [Concomitant]
  2. INTRAROSA [Suspect]
     Active Substance: PRASTERONE
     Indication: VULVOVAGINAL DRYNESS
     Dosage: ?          QUANTITY:1 DF DOSAGE FORM;?
     Route: 067
     Dates: start: 20180305, end: 20180324
  3. MULTIVITAMINS [Concomitant]
     Active Substance: VITAMINS

REACTIONS (3)
  - Dyspareunia [None]
  - Drug effect incomplete [None]
  - Vulvovaginal pain [None]

NARRATIVE: CASE EVENT DATE: 20180305
